FAERS Safety Report 7304663-2 (Version None)
Quarter: 2011Q1

REPORT INFORMATION
  Report Type: 
  Country: None (occurrence: None)
  Receive Date: 20110222
  Receipt Date: 20110207
  Transmission Date: 20110831
  Serious: Yes (Death, Hospitalization)
  Sender: FDA-Public Use
  Company Number: JP-CELGENEUS-087-21880-10100908

PATIENT
  Sex: Female
  Weight: 42.8 kg

DRUGS (13)
  1. BERIZYM [Concomitant]
     Indication: PROPHYLAXIS
     Route: 048
     Dates: start: 20100310, end: 20101004
  2. LAXOBERON [Concomitant]
     Indication: CONSTIPATION
     Route: 048
     Dates: start: 20100310, end: 20101004
  3. LENADEX [Suspect]
     Indication: MULTIPLE MYELOMA
     Route: 048
     Dates: start: 20100914, end: 20100928
  4. TAKEPRON [Concomitant]
     Indication: PROPHYLAXIS
     Route: 048
     Dates: start: 20100310, end: 20101004
  5. REVLIMID [Suspect]
     Indication: MULTIPLE MYELOMA
     Route: 048
     Dates: start: 20100914, end: 20101004
  6. DIART [Concomitant]
     Indication: PROPHYLAXIS
     Route: 048
     Dates: start: 20100310, end: 20101004
  7. ZYLORIC [Concomitant]
     Indication: PROPHYLAXIS
     Route: 048
     Dates: start: 20100310, end: 20101004
  8. BAKTAR [Concomitant]
     Indication: PROPHYLAXIS
     Route: 048
     Dates: start: 20100310, end: 20101004
  9. URSO 250 [Concomitant]
     Indication: PROPHYLAXIS
     Route: 048
     Dates: start: 20100310, end: 20101004
  10. FOIPAN [Concomitant]
     Indication: PROPHYLAXIS
  11. FOIPAN [Concomitant]
     Route: 048
     Dates: start: 20100310, end: 20101004
  12. PREDONINE [Concomitant]
     Route: 048
     Dates: start: 20100310, end: 20101004
  13. CYTOTEC [Concomitant]
     Indication: PROPHYLAXIS
     Route: 048
     Dates: start: 20100310, end: 20101004

REACTIONS (5)
  - CARDIAC ARREST [None]
  - PLATELET COUNT DECREASED [None]
  - PLEURAL EFFUSION [None]
  - NEUTROPHIL COUNT DECREASED [None]
  - UPPER GASTROINTESTINAL HAEMORRHAGE [None]
